FAERS Safety Report 8237451-3 (Version None)
Quarter: 2012Q1

REPORT INFORMATION
  Report Type: 
  Country: None (occurrence: None)
  Receive Date: 20120327
  Receipt Date: 20120313
  Transmission Date: 20120608
  Serious: Yes (Other)
  Sender: FDA-Public Use
  Company Number: PHHY2011AR07021

PATIENT
  Age: 37 Year
  Sex: Male

DRUGS (6)
  1. LINEZOLID [Suspect]
     Dosage: 600 MG, QD
  2. MELLARIL [Suspect]
     Dosage: 200 MG, PER DAY
  3. CYCLOSERINE [Suspect]
     Indication: TUBERCULOSIS
  4. LINEZOLID [Suspect]
     Indication: TUBERCULOSIS
     Dosage: 600 MG, BID
  5. MELLARIL [Suspect]
     Dosage: 25 MG, DAILY
  6. MOXIFLOXACIN [Suspect]
     Indication: TUBERCULOSIS

REACTIONS (1)
  - OPTIC NEURITIS [None]
